FAERS Safety Report 23390475 (Version 16)
Quarter: 2025Q2

REPORT INFORMATION
  Report Type: Report from Study
  Country: US (occurrence: US)
  Receive Date: 20240111
  Receipt Date: 20250506
  Transmission Date: 20250717
  Serious: Yes (Disabling, Other)
  Sender: AMGEN
  Company Number: US-HORIZON THERAPEUTICS-HZN-2022-003241

PATIENT
  Age: 65 Year
  Sex: Female
  Weight: 63 kg

DRUGS (58)
  1. TEPEZZA [Suspect]
     Active Substance: TEPROTUMUMAB-TRBW
     Indication: Endocrine ophthalmopathy
     Route: 042
     Dates: start: 20220323, end: 20220323
  2. TEPEZZA [Suspect]
     Active Substance: TEPROTUMUMAB-TRBW
     Route: 042
     Dates: start: 20220413, end: 20220413
  3. TEPEZZA [Suspect]
     Active Substance: TEPROTUMUMAB-TRBW
     Route: 042
     Dates: start: 20220504, end: 20220504
  4. TEPEZZA [Suspect]
     Active Substance: TEPROTUMUMAB-TRBW
     Route: 042
     Dates: start: 20220525, end: 20220525
  5. TEPEZZA [Suspect]
     Active Substance: TEPROTUMUMAB-TRBW
     Route: 042
     Dates: start: 20220615, end: 20220615
  6. TEPEZZA [Suspect]
     Active Substance: TEPROTUMUMAB-TRBW
     Route: 042
     Dates: start: 20220706, end: 20220706
  7. TEPEZZA [Suspect]
     Active Substance: TEPROTUMUMAB-TRBW
     Route: 042
     Dates: start: 20220727, end: 20220727
  8. TEPEZZA [Suspect]
     Active Substance: TEPROTUMUMAB-TRBW
     Route: 042
     Dates: start: 20220817, end: 20220817
  9. PREDNISONE [Suspect]
     Active Substance: PREDNISONE
     Indication: Product used for unknown indication
     Route: 065
  10. SYNTHROID [Concomitant]
     Active Substance: LEVOTHYROXINE SODIUM
     Dosage: 1 DOSAGE FORM, QD (1 TABLET ONCE A DAY, 1/2 TABLET ON SUNDAYS, QD)
     Route: 048
  11. SYNTHROID [Concomitant]
     Active Substance: LEVOTHYROXINE SODIUM
     Dosage: 0.075 MILLIGRAM, QD QAM ON EMPTY STOMACH
     Route: 048
  12. SYNTHROID [Concomitant]
     Active Substance: LEVOTHYROXINE SODIUM
     Dosage: 50 MICROGRAM, QD (1 TABLET DAILY 6 DAYS PER WEEK; ON 7TH DAY, TAKE HALF THE TABLET)
     Route: 065
     Dates: start: 20230506
  13. VITAMIN C [Concomitant]
     Active Substance: ASCORBIC ACID
     Dosage: 1000 MILLIGRAM, QD
     Route: 048
  14. VITAMIN C [Concomitant]
     Active Substance: ASCORBIC ACID
     Dosage: 500 MILLIGRAM, QD
     Route: 048
  15. VITAMIN D [Concomitant]
     Active Substance: VITAMIN D NOS
     Route: 048
  16. VITAMIN D [Concomitant]
     Active Substance: VITAMIN D NOS
     Dosage: 1000 INTERNATIONAL UNIT, QD
     Route: 065
  17. VITAMIN D [Concomitant]
     Active Substance: VITAMIN D NOS
     Dosage: 2000 UNIT, QD
     Route: 048
  18. AZELASTINE HYDROCHLORIDE [Concomitant]
     Active Substance: AZELASTINE HYDROCHLORIDE
     Dosage: UNK, BID
     Route: 047
  19. INFLUENZA VIRUS VACCINE [Concomitant]
     Active Substance: INFLUENZA VIRUS VACCINE
     Route: 065
  20. VITAMINS [Concomitant]
     Active Substance: VITAMINS
     Route: 065
  21. ASPIRIN [Concomitant]
     Active Substance: ASPIRIN
     Dosage: 162 MILLIGRAM, QD (2 TABLET)
     Route: 048
  22. CARBOXYMETHYLCELLULOSE SODIUM [Concomitant]
     Active Substance: CARBOXYMETHYLCELLULOSE SODIUM
     Route: 047
  23. VITAMIN D2 [Concomitant]
     Active Substance: ERGOCALCIFEROL
     Dosage: UNK, QWK
     Route: 048
  24. OMEGA-3 FATTY ACIDS [Concomitant]
     Active Substance: OMEGA-3 FATTY ACIDS
     Dosage: 1000 MILLIGRAM, BID
     Route: 065
  25. OMEGA-3 FATTY ACIDS [Concomitant]
     Active Substance: OMEGA-3 FATTY ACIDS
     Dosage: UNK, QD
  26. ANASTROZOLE [Concomitant]
     Active Substance: ANASTROZOLE
     Dosage: 1 MILLIGRAM, QD
     Route: 048
     Dates: start: 202310
  27. RIFAXIMIN [Concomitant]
     Active Substance: RIFAXIMIN
     Route: 065
  28. Mebeverina [Concomitant]
     Route: 065
  29. VITAMIN D3 [Concomitant]
     Active Substance: CHOLECALCIFEROL
     Dosage: 50 MICROGRAM, QD
     Route: 048
  30. VITAMIN D3 [Concomitant]
     Active Substance: CHOLECALCIFEROL
     Route: 048
  31. PREMARIN [Concomitant]
     Active Substance: ESTROGENS, CONJUGATED
     Route: 067
  32. LORATADINE [Concomitant]
     Active Substance: LORATADINE
     Dosage: 10 MILLIGRAM, QD
     Route: 048
  33. LEVOTHYROXINE SODIUM [Concomitant]
     Active Substance: LEVOTHYROXINE SODIUM
     Dosage: 50 MICROGRAM, QD
     Route: 048
  34. LEVOTHYROXINE SODIUM [Concomitant]
     Active Substance: LEVOTHYROXINE SODIUM
     Dosage: 25 MILLIGRAM, QD (EVERY MORNING ON EMPTY STOMACH)
     Route: 048
  35. LEVOTHYROXINE SODIUM [Concomitant]
     Active Substance: LEVOTHYROXINE SODIUM
     Dosage: 25 MILLIGRAM, QD
     Route: 048
  36. ANCEF [Concomitant]
     Active Substance: CEFAZOLIN SODIUM
     Route: 042
  37. DILAUDID [Concomitant]
     Active Substance: HYDROMORPHONE HYDROCHLORIDE
     Indication: Pain
     Dosage: 0.2 MILLIGRAM, Q10MIN (MODERATE PAIN)
     Route: 042
     Dates: start: 20240503
  38. DILAUDID [Concomitant]
     Active Substance: HYDROMORPHONE HYDROCHLORIDE
     Dosage: 0.5 MILLIGRAM, Q10MIN (SEVERE PAIN)
     Route: 042
  39. DEMEROL [Concomitant]
     Active Substance: MEPERIDINE HYDROCHLORIDE
     Indication: Chills
     Dosage: 12.5 MILLIGRAM, Q10MIN
     Route: 042
  40. ZOFRAN [Concomitant]
     Active Substance: ONDANSETRON HYDROCHLORIDE
     Indication: Nausea
     Route: 042
     Dates: start: 20240503
  41. REGLAN [Concomitant]
     Active Substance: METOCLOPRAMIDE HYDROCHLORIDE
     Indication: Nausea
     Route: 042
  42. SODIUM CHLORIDE [Concomitant]
     Active Substance: SODIUM CHLORIDE
     Route: 042
  43. MARCAINE [Concomitant]
     Active Substance: BUPIVACAINE HYDROCHLORIDE
     Route: 065
  44. EXPAREL [Concomitant]
     Active Substance: BUPIVACAINE
     Route: 058
  45. LACTATED RINGERS SOLUTION [Concomitant]
     Active Substance: CALCIUM CHLORIDE\POTASSIUM CHLORIDE\SODIUM CHLORIDE\SODIUM LACTATE
     Route: 065
  46. MIDAZOLAM [Concomitant]
     Active Substance: MIDAZOLAM
     Route: 042
     Dates: start: 20240503
  47. FENTANYL [Concomitant]
     Active Substance: FENTANYL
     Route: 042
     Dates: start: 20240503
  48. PROPOFOL [Concomitant]
     Active Substance: PROPOFOL
     Route: 042
     Dates: start: 20240503
  49. CEFAZOLIN [Concomitant]
     Active Substance: CEFAZOLIN
     Route: 042
     Dates: start: 20240503
  50. POLYETHYLENE GLYCOL [Concomitant]
     Active Substance: POLYETHYLENE GLYCOL
     Route: 065
  51. LINZESS [Concomitant]
     Active Substance: LINACLOTIDE
     Dosage: UNK, QD (30 MIN BEFORE FIRST MEAL ON EMPTY STOMACH)
     Route: 048
  52. OMEPRAZOLE [Concomitant]
     Active Substance: OMEPRAZOLE
     Dosage: UNK UNK, QD
     Route: 065
  53. CALTRATE WITH VITAMIN D [Concomitant]
     Active Substance: CALCIUM CARBONATE\CHOLECALCIFEROL
     Route: 048
  54. ANUSOL HC [Concomitant]
     Active Substance: HYDROCORTISONE
     Dosage: UNK UNK, BID
     Route: 054
  55. MONTELUKAST SODIUM [Concomitant]
     Active Substance: MONTELUKAST SODIUM
     Dosage: 10 MILLIGRAM, QD
     Route: 048
  56. BEPREVE [Concomitant]
     Active Substance: BEPOTASTINE BESILATE
     Route: 047
  57. NORFLOXACIN [Concomitant]
     Active Substance: NORFLOXACIN
     Route: 065
  58. ALPRAZOLAM [Concomitant]
     Active Substance: ALPRAZOLAM
     Indication: Anxiety
     Dosage: 0.25 MILLIGRAM, QD
     Route: 048

REACTIONS (97)
  - Physical disability [Not Recovered/Not Resolved]
  - Disability [Not Recovered/Not Resolved]
  - Hyperkalaemia [Unknown]
  - Deafness neurosensory [Not Recovered/Not Resolved]
  - Exophthalmos [Unknown]
  - Cataract nuclear [Unknown]
  - Autoimmune thyroiditis [Unknown]
  - Breast cancer stage I [Unknown]
  - Invasive ductal breast carcinoma [Unknown]
  - Hormone receptor positive breast cancer [Unknown]
  - Glaucoma [Unknown]
  - Cerebral small vessel ischaemic disease [Unknown]
  - Hepatitis [Unknown]
  - Amaurosis fugax [Unknown]
  - Transient ischaemic attack [Unknown]
  - Hypothyroidism [Unknown]
  - Urinary tract infection [Unknown]
  - Leukocytosis [Unknown]
  - Osteopenia [Unknown]
  - Anxiety [Not Recovered/Not Resolved]
  - Pain [Not Recovered/Not Resolved]
  - Concomitant disease aggravated [Not Recovered/Not Resolved]
  - Injury [Not Recovered/Not Resolved]
  - Quality of life decreased [Not Recovered/Not Resolved]
  - Discomfort [Not Recovered/Not Resolved]
  - Auditory disorder [Not Recovered/Not Resolved]
  - Ear pain [Unknown]
  - Economic problem [Not Recovered/Not Resolved]
  - Dry eye [Unknown]
  - Arthralgia [Unknown]
  - Pain in extremity [Unknown]
  - Strabismus [Unknown]
  - Vitamin D decreased [Unknown]
  - Blood creatinine decreased [Unknown]
  - Gastrointestinal disorder [Unknown]
  - Cholelithiasis [Unknown]
  - Blood pressure systolic increased [Unknown]
  - Urinary incontinence [Unknown]
  - Red blood cell count decreased [Unknown]
  - Glomerular filtration rate decreased [Unknown]
  - Blood cholesterol increased [Unknown]
  - Low density lipoprotein increased [Unknown]
  - High density lipoprotein increased [Unknown]
  - Dermal cyst [Unknown]
  - Blood potassium increased [Unknown]
  - Blood chloride decreased [Unknown]
  - Carbon dioxide increased [Unknown]
  - Emotional distress [Not Recovered/Not Resolved]
  - Aspartate aminotransferase increased [Unknown]
  - Alanine aminotransferase increased [Unknown]
  - Hypoaesthesia [Unknown]
  - Paraesthesia [Unknown]
  - Respiratory rate increased [Unknown]
  - Blood thyroid stimulating hormone increased [Unknown]
  - Thyroxine free decreased [Unknown]
  - Tri-iodothyronine decreased [Unknown]
  - Blood pressure increased [Unknown]
  - Heart rate increased [Unknown]
  - Heart rate decreased [Unknown]
  - Lymphocyte count decreased [Unknown]
  - Prothrombin time prolonged [Unknown]
  - International normalised ratio increased [Unknown]
  - Spinal osteoarthritis [Unknown]
  - Hiatus hernia [Unknown]
  - Constipation [Unknown]
  - Breast mass [Unknown]
  - Hepatic steatosis [Unknown]
  - Dental care [Unknown]
  - Neutrophil count increased [Unknown]
  - Tri-iodothyronine free decreased [Unknown]
  - Mastitis [Unknown]
  - Enuresis [Unknown]
  - Hot flush [Unknown]
  - Night sweats [Unknown]
  - Vulvovaginal dryness [Unknown]
  - Back pain [Unknown]
  - Blood glucose decreased [Unknown]
  - Asthenia [Recovered/Resolved]
  - Tinnitus [Not Recovered/Not Resolved]
  - Hyperglycaemia [Unknown]
  - Drug ineffective [Unknown]
  - Chest pain [Unknown]
  - Cardiac stress test abnormal [Unknown]
  - Menopausal symptoms [Unknown]
  - Allergic pharyngitis [Unknown]
  - Chills [Unknown]
  - Antinuclear antibody positive [Unknown]
  - Abdominal pain [Unknown]
  - Cervical radiculopathy [Unknown]
  - Vaginal prolapse [Unknown]
  - Atrophic vulvovaginitis [Unknown]
  - Haematocrit decreased [Unknown]
  - Haemoglobin decreased [Unknown]
  - Mean cell haemoglobin increased [Unknown]
  - Cellulitis [Unknown]
  - Skin lesion [Unknown]
  - Eosinophil count increased [Unknown]

NARRATIVE: CASE EVENT DATE: 20140713
